FAERS Safety Report 7469852-5 (Version None)
Quarter: 2011Q2

REPORT INFORMATION
  Report Type: 
  Country: None (occurrence: None)
  Receive Date: 20110510
  Receipt Date: 20110422
  Transmission Date: 20111010
  Serious: No
  Sender: FDA-Public Use
  Company Number: US-B.I. PHARMACEUTICALS,INC./RIDGEFIELD-2011-BP-06935BP

PATIENT
  Sex: Male

DRUGS (26)
  1. PRANDIN [Concomitant]
     Indication: DIABETES MELLITUS
  2. LEVOTHYROXINE SODIUM [Concomitant]
     Indication: HYPOTHYROIDISM
  3. NITROGLYCERIN [Concomitant]
     Indication: ANGINA PECTORIS
  4. SAW PALMETTO [Concomitant]
  5. METOCLOPRAMIDE [Concomitant]
     Indication: HYPERCHLORHYDRIA
  6. CO Q-10 [Concomitant]
  7. GABAPENTIN [Concomitant]
     Indication: NEUROPATHY PERIPHERAL
  8. COZAAR [Concomitant]
     Indication: HYPERTENSION
  9. PRADAXA [Suspect]
     Indication: ATRIAL FIBRILLATION
     Dosage: 150 MG
     Route: 048
     Dates: start: 20110201
  10. DIABETA [Concomitant]
     Indication: DIABETES MELLITUS
  11. ISOSORBIDE DINITRATE [Concomitant]
     Indication: ANGINA PECTORIS
  12. ASPIRIN [Concomitant]
     Indication: CARDIAC DISORDER
  13. FUROSEMIDE [Concomitant]
     Indication: CARDIAC FAILURE CONGESTIVE
  14. VIT D [Concomitant]
  15. NORVASC [Concomitant]
     Indication: HYPERTENSION
  16. STOOL SOFTNER [Concomitant]
  17. ZYRTEC [Concomitant]
  18. LANTUS [Concomitant]
     Indication: DIABETES MELLITUS
  19. METOPROLOL SUCCINATE [Concomitant]
     Indication: HYPERTENSION
  20. CRESTOR [Concomitant]
     Indication: BLOOD CHOLESTEROL INCREASED
  21. NIACIN [Concomitant]
  22. POTASSIUM [Concomitant]
  23. ZEMPLAR [Concomitant]
     Indication: HYPOTHYROIDISM
  24. BYETTA [Concomitant]
  25. FUROSEMIDE [Concomitant]
     Indication: HYPERTENSION
  26. MULTI-VITAMIN [Concomitant]

REACTIONS (1)
  - BLOOD GLUCOSE INCREASED [None]
